FAERS Safety Report 11505452 (Version 1)
Quarter: 2015Q3

REPORT INFORMATION
  Report Type: Spontaneous
  Country: US (occurrence: US)
  Receive Date: 20150915
  Receipt Date: 20150915
  Transmission Date: 20151125
  Serious: No
  Sender: FDA-Public Use
  Company Number: US-ROCHE-731975

PATIENT
  Age: 59 Year
  Sex: Male

DRUGS (4)
  1. COPEGUS [Suspect]
     Active Substance: RIBAVIRIN
     Indication: HEPATITIS C
     Dosage: DIVIDED DOSES
     Route: 065
  2. PEGASYS [Suspect]
     Active Substance: PEGINTERFERON ALFA-2A
     Indication: HEPATITIS C
     Dosage: FORM: PRE-FILLED SYRINGE
     Route: 065
     Dates: start: 20100924, end: 20110325
  3. COPEGUS [Suspect]
     Active Substance: RIBAVIRIN
     Dosage: FORM:PILLS
     Route: 065
  4. RIBAVIRIN. [Suspect]
     Active Substance: RIBAVIRIN
     Indication: HEPATITIS C
     Dosage: FORM:PILLS
     Route: 065

REACTIONS (7)
  - Weight decreased [Unknown]
  - Rhinorrhoea [Not Recovered/Not Resolved]
  - Decreased appetite [Unknown]
  - Tooth disorder [Not Recovered/Not Resolved]
  - Injection site reaction [Unknown]
  - Confusional state [Unknown]
  - Sinus congestion [Unknown]

NARRATIVE: CASE EVENT DATE: 20100927
